FAERS Safety Report 5482223-6 (Version None)
Quarter: 2007Q4

REPORT INFORMATION
  Report Type: 
  Country: None (occurrence: None)
  Receive Date: 20071011
  Receipt Date: 20070927
  Transmission Date: 20080405
  Serious: Yes (Death, Life-Threatening, Hospitalization)
  Sender: FDA-Public Use
  Company Number: DE-BRISTOL-MYERS SQUIBB COMPANY-13930953

PATIENT
  Age: 70 Year
  Sex: Female

DRUGS (2)
  1. ENDOXAN [Suspect]
     Indication: CHRONIC LYMPHOCYTIC LEUKAEMIA
     Dates: end: 20070801
  2. FLUDARA [Suspect]
     Indication: CHRONIC LYMPHOCYTIC LEUKAEMIA
     Dates: end: 20070801

REACTIONS (14)
  - AORTIC VALVE INCOMPETENCE [None]
  - BACTERAEMIA [None]
  - BASILAR ARTERY THROMBOSIS [None]
  - BONE MARROW FAILURE [None]
  - BRAIN STEM INFARCTION [None]
  - BRONCHOPULMONARY ASPERGILLOSIS [None]
  - DELIRIUM [None]
  - HAEMOLYTIC ANAEMIA [None]
  - HEPATIC FUNCTION ABNORMAL [None]
  - IMMUNODEFICIENCY [None]
  - MULTI-ORGAN FAILURE [None]
  - PANCYTOPENIA [None]
  - RESPIRATORY TRACT INFECTION [None]
  - STAPHYLOCOCCAL SEPSIS [None]
